FAERS Safety Report 15326092 (Version 1)
Quarter: 2018Q3

REPORT INFORMATION
  Report Type: Spontaneous
  Country: US (occurrence: US)
  Receive Date: 20180823
  Receipt Date: 20180823
  Transmission Date: 20181010
  Serious: Yes (Death)
  Sender: FDA-Public Use
  Company Number: None

PATIENT
  Age: 50 Year
  Sex: Female
  Weight: 113.6 kg

DRUGS (11)
  1. HEPARIN [Suspect]
     Active Substance: HEPARIN SODIUM
     Indication: THROMBOSIS
     Route: 040
     Dates: start: 20180408, end: 20180408
  2. LACTATED RINGERS SOLUTION [Concomitant]
     Active Substance: CALCIUM CHLORIDE\POTASSIUM CHLORIDE\SODIUM CHLORIDE\SODIUM LACTATE
     Dates: start: 20180408, end: 20180408
  3. ALTEPLASE. [Suspect]
     Active Substance: ALTEPLASE
     Indication: THROMBOSIS
     Route: 040
     Dates: start: 20180408, end: 20180408
  4. INSULIN LISPRO [Concomitant]
     Active Substance: INSULIN LISPRO
     Dates: start: 20180409, end: 20180409
  5. RANITIDINE. [Concomitant]
     Active Substance: RANITIDINE
     Dates: start: 20180409, end: 20180410
  6. ESCITALOPRAM [Concomitant]
     Active Substance: ESCITALOPRAM OXALATE
     Dates: start: 20180409, end: 20180410
  7. PROTAMINE [Concomitant]
     Active Substance: PROTAMINE
     Dates: start: 20180409, end: 20180409
  8. SIMVASTATIN. [Concomitant]
     Active Substance: SIMVASTATIN
     Dates: start: 20180409, end: 20180410
  9. HEPARIN [Suspect]
     Active Substance: HEPARIN SODIUM
     Indication: PULMONARY EMBOLISM
     Route: 040
     Dates: start: 20180408, end: 20180408
  10. HYDRALAZINE [Concomitant]
     Active Substance: HYDRALAZINE HYDROCHLORIDE
     Dates: start: 20180409, end: 20180409
  11. MANNITOL. [Concomitant]
     Active Substance: MANNITOL
     Dates: start: 20180409, end: 20180410

REACTIONS (9)
  - Cerebral haemorrhage [None]
  - Headache [None]
  - Asthenia [None]
  - Hyperhidrosis [None]
  - Vomiting [None]
  - Cardiac death [None]
  - Pulmonary embolism [None]
  - Hypotension [None]
  - Lethargy [None]

NARRATIVE: CASE EVENT DATE: 20180409
